FAERS Safety Report 8515645-7 (Version None)
Quarter: 2012Q3

REPORT INFORMATION
  Report Type: 
  Country: None (occurrence: None)
  Receive Date: 20120717
  Receipt Date: 20120712
  Transmission Date: 20120928
  Serious: Yes (Other)
  Sender: FDA-Public Use
  Company Number: PHHY2012PL057972

PATIENT
  Age: 65 Year
  Sex: Male

DRUGS (8)
  1. ANTIHYPERTENSIVE DRUGS [Concomitant]
     Dosage: UNK UKN, UNK
  2. OMEPRAZOLE [Concomitant]
     Dosage: 20 MG, UNK
  3. STEROIDS NOS [Concomitant]
     Dosage: UNK UKN, UNK
  4. CERTICAN [Suspect]
     Indication: RENAL TRANSPLANT
     Dosage: 1.5 MG PER DAY
     Dates: start: 20110118
  5. PREDNISONE [Concomitant]
     Dosage: 5 MG, UNK
     Dates: start: 20071221
  6. MYFORTIC [Suspect]
     Indication: RENAL TRANSPLANT
     Dosage: 360 MG, TID
     Dates: start: 20111117, end: 20111214
  7. MYFORTIC [Suspect]
     Indication: IMMUNOSUPPRESSION
     Dosage: 720 MG, A DAY
     Dates: start: 20111214
  8. CERTICAN [Suspect]
     Dosage: 2 MG, PER DAY
     Dates: start: 20111214

REACTIONS (3)
  - URINARY TRACT INFECTION [None]
  - ABDOMINAL PAIN [None]
  - BENIGN PROSTATIC HYPERPLASIA [None]
